FAERS Safety Report 4528013-X (Version None)
Quarter: 2004Q4

REPORT INFORMATION
  Report Type: 
  Country: None (occurrence: None)
  Receive Date: 20041123
  Receipt Date: 20040315
  Transmission Date: 20050328
  Serious: Yes (Other)
  Sender: FDA-Public Use
  Company Number: 2004017813

PATIENT
  Age: 67 Year
  Sex: Male
  Weight: 77.1115 kg

DRUGS (6)
  1. LIPITOR [Suspect]
     Indication: LOW DENSITY LIPOPROTEIN
     Dosage: 10 MG (DAILY), ORAL
     Route: 048
     Dates: start: 20030601, end: 20030701
  2. NICOTINIC ACID [Suspect]
     Indication: ILL-DEFINED DISORDER
     Dosage: 1000 MG (DAILY)
     Dates: end: 20040314
  3. LISINOPRIL [Concomitant]
  4. ASPIRIN [Concomitant]
  5. HERBAL PREPARATION (HERBAL PREPARATION) [Concomitant]
  6. VITAMINS NOS (VITAMINS NOS) [Concomitant]

REACTIONS (4)
  - DRUG INTERACTION [None]
  - MYALGIA [None]
  - RHABDOMYOLYSIS [None]
  - TENDONITIS [None]
